FAERS Safety Report 5684224-1 (Version None)
Quarter: 2008Q1

REPORT INFORMATION
  Report Type: 
  Country: None (occurrence: None)
  Receive Date: 20080328
  Receipt Date: 20071227
  Transmission Date: 20080703
  Serious: Yes (Hospitalization)
  Sender: FDA-Public Use
  Company Number: US-AMGEN-QUU256688

PATIENT
  Sex: Male
  Weight: 104.9 kg

DRUGS (9)
  1. NEULASTA [Suspect]
     Indication: CHEMOTHERAPY
     Dates: start: 20071113, end: 20071113
  2. ARANESP [Suspect]
     Indication: ANAEMIA OF MALIGNANT DISEASE
     Dates: start: 20071113, end: 20071113
  3. RITUXAN [Concomitant]
     Dates: end: 20071109
  4. LORTAB [Concomitant]
  5. TRAZODONE HCL [Concomitant]
  6. DEPAKOTE [Concomitant]
  7. KLONOPIN [Concomitant]
  8. ASPIRIN [Concomitant]
  9. POLYETHYLENE GLYCOL [Concomitant]

REACTIONS (2)
  - PYREXIA [None]
  - RASH GENERALISED [None]
